FAERS Safety Report 12487220 (Version 1)
Quarter: 2016Q2

REPORT INFORMATION
  Report Type: Spontaneous
  Country: US (occurrence: None)
  Receive Date: 20160621
  Receipt Date: 20160621
  Transmission Date: 20160815
  Serious: Yes (Other)
  Sender: FDA-Public Use
  Company Number: None

PATIENT
  Age: 67 Year
  Sex: Female
  Weight: 65.77 kg

DRUGS (2)
  1. LIPITOR [Concomitant]
     Active Substance: ATORVASTATIN CALCIUM
  2. CYMBALTA [Suspect]
     Active Substance: DULOXETINE HYDROCHLORIDE
     Indication: NEURALGIA
     Dosage: 30 CAPSULES ONCE A DAY
     Route: 048
     Dates: end: 20160607

REACTIONS (9)
  - Diarrhoea [None]
  - Headache [None]
  - Tinnitus [None]
  - Nausea [None]
  - Insomnia [None]
  - Visual impairment [None]
  - Lethargy [None]
  - Drug withdrawal syndrome [None]
  - Cognitive disorder [None]

NARRATIVE: CASE EVENT DATE: 20160614
